FAERS Safety Report 16825724 (Version 1)
Quarter: 2019Q3

REPORT INFORMATION
  Report Type: Spontaneous
  Country: GB (occurrence: GB)
  Receive Date: 20190919
  Receipt Date: 20190919
  Transmission Date: 20191005
  Serious: Yes (Other)
  Sender: FDA-Public Use
  Company Number: GB-TEVA-2019-GB-1109148

PATIENT
  Age: 59 Year
  Sex: Male
  Weight: 86 kg

DRUGS (1)
  1. LANSOPRAZOLE. [Suspect]
     Active Substance: LANSOPRAZOLE
     Dosage: 15 MG
     Route: 048
     Dates: start: 20190723, end: 20190817

REACTIONS (4)
  - Abdominal pain upper [Recovering/Resolving]
  - Malaise [Recovering/Resolving]
  - Dry mouth [Recovering/Resolving]
  - Flatulence [Recovering/Resolving]

NARRATIVE: CASE EVENT DATE: 20190811
